FAERS Safety Report 4592677-5 (Version None)
Quarter: 2005Q1

REPORT INFORMATION
  Report Type: 
  Country: None (occurrence: None)
  Receive Date: 20050222
  Receipt Date: 20050210
  Transmission Date: 20050727
  Serious: Yes (Death, Hospitalization, Other)
  Sender: FDA-Public Use
  Company Number: 2005-01-1788

PATIENT
  Age: 72 Year
  Sex: Male

DRUGS (7)
  1. TEMODAL [Suspect]
     Indication: GLIOBLASTOMA MULTIFORME
     Dosage: 400 MG QD ORAL; SEE IMAGE
     Route: 048
     Dates: start: 20041013, end: 20041017
  2. TEMODAL [Suspect]
     Indication: GLIOBLASTOMA MULTIFORME
     Dosage: 400 MG QD ORAL; SEE IMAGE
     Route: 048
     Dates: start: 20041013, end: 20041115
  3. TEMODAL [Suspect]
     Indication: GLIOBLASTOMA MULTIFORME
     Dosage: 400 MG QD ORAL; SEE IMAGE
     Route: 048
     Dates: start: 20041111, end: 20041115
  4. RADIATION THERAPY [Concomitant]
  5. GLIOBLASTOMA MULTIFORME [Concomitant]
  6. HAPARIN INJECTABLE [Concomitant]
  7. METAMIZOLE TABLETS [Concomitant]

REACTIONS (6)
  - DISEASE PROGRESSION [None]
  - GENERAL PHYSICAL HEALTH DETERIORATION [None]
  - NEOPLASM PROGRESSION [None]
  - RESPIRATORY FAILURE [None]
  - SOMNOLENCE [None]
  - THROMBOCYTOPENIA [None]
